FAERS Safety Report 6287484-1 (Version None)
Quarter: 2009Q3

REPORT INFORMATION
  Report Type: 
  Country: None (occurrence: None)
  Receive Date: 20090727
  Receipt Date: 20090717
  Transmission Date: 20100115
  Serious: Yes (Hospitalization)
  Sender: FDA-Public Use
  Company Number: SPV1-2009-01486

PATIENT
  Age: 21 Year
  Sex: Male
  Weight: 74.8 kg

DRUGS (1)
  1. VYVANSE [Suspect]
     Indication: DRUG USE FOR UNKNOWN INDICATION
     Dosage: 50 MG
     Dates: start: 20090701

REACTIONS (1)
  - PNEUMOMEDIASTINUM [None]
